FAERS Safety Report 9455291 (Version 1)
Quarter: 2013Q3

REPORT INFORMATION
  Report Type: Spontaneous
  Country: BR (occurrence: BR)
  Receive Date: 20130813
  Receipt Date: 20130813
  Transmission Date: 20140515
  Serious: Yes (Other)
  Sender: FDA-Public Use
  Company Number: BR-RANBAXY-2013R5-71935

PATIENT
  Age: 5 Year
  Sex: Male
  Weight: 31 kg

DRUGS (3)
  1. CEFUROXIME AXETIL [Suspect]
     Indication: SINUSITIS
     Dosage: 10 ML, BID
     Route: 048
     Dates: start: 20130722, end: 20130728
  2. CEFUROXIME AXETIL [Suspect]
     Indication: TONSILLITIS
  3. DIPYRONE [Concomitant]
     Indication: PYREXIA
     Dosage: 30 DROPS
     Route: 065
     Dates: start: 20130722

REACTIONS (1)
  - Confusional state [Recovered/Resolved]
